FAERS Safety Report 4842197-5 (Version None)
Quarter: 2005Q4

REPORT INFORMATION
  Report Type: 
  Country: None (occurrence: None)
  Receive Date: 20051201
  Receipt Date: 20050524
  Transmission Date: 20060501
  Serious: Yes (Hospitalization, Other)
  Sender: FDA-Public Use
  Company Number: US-SP-2005-00992

PATIENT
  Age: 14 Year
  Sex: Male

DRUGS (3)
  1. TUBERCULIN PPD [Suspect]
     Route: 030
     Dates: start: 20050523
  2. TUBERCULIN PPD [Suspect]
     Route: 030
     Dates: start: 20050523
  3. DIPHTHERIA AND TETANUS TOXOIDS [Concomitant]
     Indication: IMMUNISATION

REACTIONS (3)
  - ASTHMA [None]
  - WHEEZING [None]
  - WRONG DRUG ADMINISTERED [None]
